FAERS Safety Report 4569244-2 (Version None)
Quarter: 2005Q1

REPORT INFORMATION
  Report Type: 
  Country: None (occurrence: None)
  Receive Date: 20050203
  Receipt Date: 20050128
  Transmission Date: 20050727
  Serious: Yes (Other)
  Sender: FDA-Public Use
  Company Number: ES-MERCK-0501ESP00053

PATIENT
  Age: 74 Year
  Sex: Female

DRUGS (4)
  1. EZETIMIBE [Suspect]
     Indication: HYPERCHOLESTEROLAEMIA
     Route: 048
     Dates: start: 20040601, end: 20050127
  2. SIMVASTATIN [Concomitant]
     Indication: HYPERCHOLESTEROLAEMIA
     Route: 048
     Dates: end: 20050127
  3. [THERAPY UNSPECIFIED] [Concomitant]
     Indication: HYPERTENSION
     Route: 065
     Dates: end: 20050127
  4. TELMISARTAN [Concomitant]
     Indication: HYPERTENSION
     Route: 065
     Dates: end: 20050127

REACTIONS (1)
  - IRON DEFICIENCY ANAEMIA [None]
